FAERS Safety Report 4287523-3 (Version None)
Quarter: 2004Q1

REPORT INFORMATION
  Report Type: 
  Country: None (occurrence: None)
  Receive Date: 20040209
  Receipt Date: 20030715
  Transmission Date: 20041129
  Serious: No
  Sender: FDA-Public Use
  Company Number: US-GLAXOSMITHKLINE-A0416854A

PATIENT
  Age: 28 Year
  Sex: Male

DRUGS (3)
  1. PAXIL CR [Suspect]
     Dosage: 25MG TWICE PER DAY
     Dates: start: 20020801
  2. VALIUM [Concomitant]
  3. ZYPREXA [Concomitant]
     Indication: SLEEP DISORDER

REACTIONS (11)
  - DIARRHOEA [None]
  - DIZZINESS [None]
  - DRUG INEFFECTIVE [None]
  - FEELING HOT [None]
  - FEELING JITTERY [None]
  - HYPERHIDROSIS [None]
  - INSOMNIA [None]
  - MEMORY IMPAIRMENT [None]
  - NAUSEA [None]
  - NIGHTMARE [None]
  - TREMOR [None]
